FAERS Safety Report 8506745-6 (Version None)
Quarter: 2012Q3

REPORT INFORMATION
  Report Type: 
  Country: None (occurrence: None)
  Receive Date: 20120712
  Receipt Date: 20120706
  Transmission Date: 20120928
  Serious: No
  Sender: FDA-Public Use
  Company Number: US-PFIZER INC-2012162464

PATIENT
  Sex: Female

DRUGS (2)
  1. LYRICA [Suspect]
     Indication: FIBROMYALGIA
     Dosage: 50 MG, 3X/DAY
  2. LYRICA [Suspect]
     Indication: PAIN

REACTIONS (7)
  - DRUG EFFECT DECREASED [None]
  - WEIGHT INCREASED [None]
  - CONFUSIONAL STATE [None]
  - APHASIA [None]
  - MEMORY IMPAIRMENT [None]
  - FOOD CRAVING [None]
  - VISION BLURRED [None]
